FAERS Safety Report 9336045 (Version 3)
Quarter: 2014Q1

REPORT INFORMATION
  Report Type: Spontaneous
  Country: US (occurrence: US)
  Receive Date: 20130607
  Receipt Date: 20140327
  Transmission Date: 20141002
  Serious: Yes (Hospitalization)
  Sender: FDA-Public Use
  Company Number: US-BIOGENIDEC-2013BI049322

PATIENT
  Age: 65 Year
  Sex: Female

DRUGS (2)
  1. AVONEX [Suspect]
     Indication: MULTIPLE SCLEROSIS
     Route: 030
     Dates: start: 20120516, end: 201305
  2. AVONEX [Suspect]
     Indication: MULTIPLE SCLEROSIS
     Route: 030
     Dates: start: 20130528

REACTIONS (6)
  - Intestinal perforation [Not Recovered/Not Resolved]
  - Dysstasia [Unknown]
  - Asthenia [Not Recovered/Not Resolved]
  - Muscular weakness [Not Recovered/Not Resolved]
  - Rash macular [Unknown]
  - Pain [Unknown]
